FAERS Safety Report 7513576-2 (Version None)
Quarter: 2011Q2

REPORT INFORMATION
  Report Type: 
  Country: None (occurrence: None)
  Receive Date: 20110531
  Receipt Date: 20110517
  Transmission Date: 20111010
  Serious: Yes (Other)
  Sender: FDA-Public Use
  Company Number: JP-GILEAD-E2B_00001293

PATIENT

DRUGS (2)
  1. HEPSERA [Suspect]
     Indication: HEPATITIS B
     Route: 065
  2. LAMIVUDINE [Suspect]
     Indication: HEPATITIS B
     Route: 065

REACTIONS (9)
  - FANCONI SYNDROME ACQUIRED [None]
  - GLYCOSURIA [None]
  - BONE PAIN [None]
  - ARTHRALGIA [None]
  - RENAL TUBULAR ACIDOSIS [None]
  - HYPOPHOSPHATAEMIA [None]
  - OSTEOMALACIA [None]
  - AMINOACIDURIA [None]
  - BONE DENSITY DECREASED [None]
